FAERS Safety Report 5718323-2 (Version None)
Quarter: 2008Q2

REPORT INFORMATION
  Report Type: 
  Country: None (occurrence: None)
  Receive Date: 20080425
  Receipt Date: 20080421
  Transmission Date: 20081010
  Serious: Yes (Hospitalization)
  Sender: FDA-Public Use
  Company Number: AU-BRISTOL-MYERS SQUIBB COMPANY-14159545

PATIENT

DRUGS (1)
  1. ORENCIA [Suspect]

REACTIONS (1)
  - MYOCARDIAL INFARCTION [None]
